FAERS Safety Report 16974039 (Version 2)
Quarter: 2019Q4

REPORT INFORMATION
  Report Type: Spontaneous
  Country: US (occurrence: US)
  Receive Date: 20191030
  Receipt Date: 20191104
  Transmission Date: 20200122
  Serious: No
  Sender: FDA-Public Use
  Company Number: US-ELI_LILLY_AND_COMPANY-US201910014328

PATIENT
  Sex: Female

DRUGS (4)
  1. HUMALOG [Suspect]
     Active Substance: INSULIN LISPRO
     Dosage: 10 U, DAILY (DINNER)
     Route: 065
  2. HUMALOG [Suspect]
     Active Substance: INSULIN LISPRO
     Dosage: 10 U, DAILY (DINNER)
     Route: 065
     Dates: start: 201807
  3. HUMALOG [Suspect]
     Active Substance: INSULIN LISPRO
     Dosage: 4 U, BID (BREAKFAST AND LUNCH)
     Route: 065
  4. HUMALOG [Suspect]
     Active Substance: INSULIN LISPRO
     Indication: LATENT AUTOIMMUNE DIABETES IN ADULTS
     Dosage: 4 U, BID (BREAKFAST AND LUNCH)
     Route: 065
     Dates: start: 201807

REACTIONS (3)
  - Product storage error [Unknown]
  - Blood glucose increased [Not Recovered/Not Resolved]
  - Incorrect dose administered [Unknown]
